FAERS Safety Report 14923571 (Version 1)
Quarter: 2018Q2

REPORT INFORMATION
  Report Type: Spontaneous
  Country: FR (occurrence: FR)
  Receive Date: 20180522
  Receipt Date: 20180522
  Transmission Date: 20180711
  Serious: Yes (Hospitalization)
  Sender: FDA-Public Use
  Company Number: FR-TEVA-2018-FR-893916

PATIENT
  Age: 16 Year
  Sex: Female

DRUGS (5)
  1. TABAC (POUDRE DE) [Suspect]
     Active Substance: TOBACCO LEAF
     Dosage: 20 CIGARETTES/DAY
     Route: 055
     Dates: start: 2012
  2. CODEINE [Suspect]
     Active Substance: CODEINE
     Route: 045
  3. CANNABIS AND RESINE [Suspect]
     Active Substance: CANNABIS SATIVA SUBSP. INDICA TOP
     Route: 065
     Dates: start: 2016
  4. TRAMADOL (CHLORHYDRATE DE) [Suspect]
     Active Substance: TRAMADOL HYDROCHLORIDE
     Dosage: 800 MILLIGRAM DAILY;
     Route: 048
     Dates: start: 2017
  5. CODEINE [Suspect]
     Active Substance: CODEINE
     Dosage: 16 DOSAGE FORMS DAILY;
     Route: 048
     Dates: start: 2015

REACTIONS (6)
  - Withdrawal syndrome [Recovered/Resolved]
  - Myalgia [Recovering/Resolving]
  - Drug abuse [Recovering/Resolving]
  - Intentional product misuse [Recovering/Resolving]
  - Drug dependence [Recovering/Resolving]
  - Amnestic disorder [Recovering/Resolving]

NARRATIVE: CASE EVENT DATE: 2015
